FAERS Safety Report 8438677-6 (Version None)
Quarter: 2012Q2

REPORT INFORMATION
  Report Type: 
  Country: None (occurrence: None)
  Receive Date: 20120611
  Receipt Date: 20120611
  Transmission Date: 20120825
  Serious: Yes (Other)
  Sender: FDA-Public Use
  Company Number: None

PATIENT
  Age: 49 Year
  Sex: Male
  Weight: 86.1834 kg

DRUGS (2)
  1. CARISOPRODOL [Suspect]
     Indication: PAIN
     Dosage: 1 THREE TIMES PO
     Route: 048
     Dates: start: 20120501, end: 20120610
  2. CARISOPRODOL [Suspect]
     Indication: INTERVERTEBRAL DISC DISORDER
     Dosage: 1 THREE TIMES PO
     Route: 048
     Dates: start: 20120501, end: 20120610

REACTIONS (2)
  - DRUG INEFFECTIVE [None]
  - PRODUCT QUALITY ISSUE [None]
